FAERS Safety Report 6111441-9 (Version None)
Quarter: 2009Q1

REPORT INFORMATION
  Report Type: 
  Country: None (occurrence: None)
  Receive Date: 20090311
  Receipt Date: 20090309
  Transmission Date: 20090719
  Serious: Yes (Hospitalization)
  Sender: FDA-Public Use
  Company Number: FR-JNJFOC-20090300784

PATIENT
  Age: 67 Year
  Sex: Male

DRUGS (5)
  1. SPORANOX [Suspect]
     Indication: DRUG USE FOR UNKNOWN INDICATION
     Route: 048
  2. CERTICAN [Suspect]
     Indication: DRUG USE FOR UNKNOWN INDICATION
     Route: 048
  3. ELISOR [Concomitant]
     Route: 048
  4. FANSIDAR [Concomitant]
     Route: 048
  5. LEDERFOLINE [Concomitant]
     Route: 065

REACTIONS (2)
  - CYTOLYTIC HEPATITIS [None]
  - HOSPITALISATION [None]
